FAERS Safety Report 4460544-3 (Version None)
Quarter: 2004Q3

REPORT INFORMATION
  Report Type: 
  Country: None (occurrence: None)
  Receive Date: 20040928
  Receipt Date: 20040817
  Transmission Date: 20050211
  Serious: No
  Sender: FDA-Public Use
  Company Number: US-GLAXOSMITHKLINE-A0522436A

PATIENT
  Age: 72 Year
  Sex: Female

DRUGS (7)
  1. ADVAIR DISKUS 100/50 [Suspect]
     Indication: ASTHMA
     Dosage: 1PUFF TWICE PER DAY
     Route: 055
     Dates: end: 20040816
  2. ALBUTEROL [Concomitant]
  3. TOPROL-XL [Concomitant]
  4. BENECOL [Concomitant]
  5. NEXIUM [Concomitant]
  6. LEXAPRO [Concomitant]
  7. CELEBREX [Concomitant]

REACTIONS (2)
  - NAUSEA [None]
  - VOMITING [None]
